FAERS Safety Report 21578047 (Version 3)
Quarter: 2022Q4

REPORT INFORMATION
  Report Type: Spontaneous
  Country: US (occurrence: US)
  Receive Date: 20221110
  Receipt Date: 20221229
  Transmission Date: 20230112
  Serious: No
  Sender: FDA-Public Use
  Company Number: US-PFIZER INC-202201274191

PATIENT
  Age: 5 Year
  Sex: Male
  Weight: 16.33 kg

DRUGS (1)
  1. GENOTROPIN [Suspect]
     Active Substance: SOMATROPIN
     Indication: Blood growth hormone decreased
     Dosage: 0.4 MG, 1X/DAY (UNDER SKIN OF UPPER THIGH OR UPPER BUTTOCKS)
     Route: 058
     Dates: start: 202004

REACTIONS (5)
  - Drug dose omission by device [Unknown]
  - Poor quality device used [Unknown]
  - Device information output issue [Unknown]
  - Device power source issue [Unknown]
  - Expired device used [Unknown]
